FAERS Safety Report 5031469-X (Version None)
Quarter: 2006Q2

REPORT INFORMATION
  Report Type: 
  Country: None (occurrence: None)
  Receive Date: 20060621
  Receipt Date: 20060517
  Transmission Date: 20061013
  Serious: Yes (Hospitalization)
  Sender: FDA-Public Use
  Company Number: US-BRISTOL-MYERS SQUIBB COMPANY-13379821

PATIENT
  Age: 59 Year
  Sex: Male
  Weight: 77 kg

DRUGS (7)
  1. ERBITUX [Suspect]
     Indication: SQUAMOUS CELL CARCINOMA
     Dosage: THERAPY INITIATED 17-MAY-2006. LOADING DOSE 788 MG.
     Dates: start: 20060501, end: 20060501
  2. DOCETAXEL [Suspect]
     Indication: SQUAMOUS CELL CARCINOMA
     Dosage: THERAPY INITIATED 17-APR-2006.
     Dates: start: 20060501, end: 20060501
  3. RADIATION THERAPY [Suspect]
     Indication: SQUAMOUS CELL CARCINOMA
     Dosage: EXTERNAL BEAM, IMRT 3000 GY, NUMBER OF FRACTIONS 15, NUMBER OF ELAPSED DAYS 19.INITIATED 17-APR-2006
     Dates: start: 20060505, end: 20060505
  4. SENOKOT [Concomitant]
     Dosage: AT BED TIME.
  5. FLOMAX [Concomitant]
  6. ZYRTEC [Concomitant]
  7. OXYCODONE HCL [Concomitant]
     Dosage: EVERY 4 HOURS AS NEEDED.

REACTIONS (5)
  - ASPIRATION [None]
  - COUGH [None]
  - MUCOSAL INFLAMMATION [None]
  - PYREXIA [None]
  - RASH [None]
